FAERS Safety Report 8282279-1 (Version None)
Quarter: 2012Q2

REPORT INFORMATION
  Report Type: 
  Country: None (occurrence: None)
  Receive Date: 20120413
  Receipt Date: 20120403
  Transmission Date: 20120825
  Serious: Yes (Hospitalization)
  Sender: FDA-Public Use
  Company Number: US-JNJFOC-20120314392

PATIENT
  Sex: Female
  Weight: 52.6 kg

DRUGS (5)
  1. INFLIXIMAB, RECOMBINANT [Suspect]
     Indication: INFLAMMATORY BOWEL DISEASE
     Route: 042
     Dates: start: 20071010, end: 20090727
  2. VITAMIN B-12 [Concomitant]
  3. ADALIMUMAB [Concomitant]
     Dates: start: 20090829
  4. MERCAPTOPURINE [Concomitant]
  5. ANTIBIOTICS FOR IBD [Concomitant]
     Indication: INFLAMMATORY BOWEL DISEASE

REACTIONS (1)
  - CROHN'S DISEASE [None]
